FAERS Safety Report 15047997 (Version 5)
Quarter: 2021Q1

REPORT INFORMATION
  Report Type: Other
  Country: US (occurrence: US)
  Receive Date: 20180622
  Receipt Date: 20210119
  Transmission Date: 20210419
  Serious: Yes (Other)
  Sender: FDA-Public Use
  Company Number: US-ROCHE-2142148

PATIENT
  Age: 57 Year
  Sex: Female

DRUGS (5)
  1. OCREVUS [Suspect]
     Active Substance: OCRELIZUMAB
     Indication: MULTIPLE SCLEROSIS
     Dosage: DATE OF TREATMENT: 12/NOV/2018, 13/MAY/2019, 11/NOV/2019
     Route: 042
     Dates: start: 20180507
  2. ERYTHROMYCIN. [Concomitant]
     Active Substance: ERYTHROMYCIN
  3. OCREVUS [Suspect]
     Active Substance: OCRELIZUMAB
     Route: 042
     Dates: start: 20180521
  4. ASA [Concomitant]
     Active Substance: ASPIRIN
  5. CODEINE [Concomitant]
     Active Substance: CODEINE

REACTIONS (4)
  - Anaphylactic shock [Recovered/Resolved]
  - Hemiparesis [Not Recovered/Not Resolved]
  - Malaise [Recovered/Resolved]
  - Nervousness [Unknown]

NARRATIVE: CASE EVENT DATE: 20180507
